FAERS Safety Report 13610085 (Version 1)
Quarter: 2017Q2

REPORT INFORMATION
  Report Type: Spontaneous
  Country: US (occurrence: US)
  Receive Date: 20170604
  Receipt Date: 20170604
  Transmission Date: 20170830
  Serious: No
  Sender: FDA-Public Use
  Company Number: US-TEVA-773331USA

PATIENT
  Age: 67 Year
  Sex: Male
  Weight: 79.9 kg

DRUGS (3)
  1. AZILECT [Suspect]
     Active Substance: RASAGILINE MESYLATE
     Indication: PARKINSON^S DISEASE
     Dates: end: 201702
  2. RASAGILINE NON-TEVA GENERIC [Concomitant]
     Indication: PARKINSON^S DISEASE
     Dosage: MORNING
     Dates: start: 201702
  3. ROPINIROLE. [Concomitant]
     Active Substance: ROPINIROLE
     Indication: PARKINSON^S DISEASE

REACTIONS (1)
  - Tremor [Not Recovered/Not Resolved]

NARRATIVE: CASE EVENT DATE: 201702
